FAERS Safety Report 9448275 (Version 1)
Quarter: 2013Q3

REPORT INFORMATION
  Report Type: Spontaneous
  Country: CA (occurrence: CA)
  Receive Date: 20130808
  Receipt Date: 20130808
  Transmission Date: 20140515
  Serious: Yes (Death)
  Sender: FDA-Public Use
  Company Number: CA-PFIZER INC-2013228992

PATIENT
  Sex: Male

DRUGS (3)
  1. INLYTA [Suspect]
     Indication: RENAL CELL CARCINOMA
     Dosage: 5 MG, CYCLIC (CYCLES 1 AND 2)
     Dates: start: 20130328
  2. INLYTA [Suspect]
     Dosage: 6 MG, UNK (CYCLE 3)
  3. INLYTA [Suspect]
     Dosage: 7 MG, UNK (CYCLES 4 AND 5)

REACTIONS (1)
  - Death [Fatal]
